FAERS Safety Report 6270086-0 (Version None)
Quarter: 2009Q3

REPORT INFORMATION
  Report Type: 
  Country: None (occurrence: None)
  Receive Date: 20090716
  Receipt Date: 20090708
  Transmission Date: 20100115
  Serious: Yes (Other)
  Sender: FDA-Public Use
  Company Number: DE-B.I. PHARMACEUTICALS,INC./RIDGEFIELD-2009-DE-04274DE

PATIENT
  Sex: Male
  Weight: 83 kg

DRUGS (3)
  1. ALNA OCAS [Suspect]
     Indication: PROSTATIC ADENOMA
     Dosage: 1 ANZ
     Route: 048
     Dates: start: 20070101
  2. MACROGOL [Concomitant]
  3. NULYTELY [Concomitant]
     Dosage: IF REQUIRED

REACTIONS (5)
  - ABNORMAL FAECES [None]
  - CONSTIPATION [None]
  - FLATULENCE [None]
  - GASTROINTESTINAL MOTILITY DISORDER [None]
  - SUBILEUS [None]
